FAERS Safety Report 11567979 (Version 3)
Quarter: 2015Q4

REPORT INFORMATION
  Report Type: Report from Study
  Country: US (occurrence: US)
  Receive Date: 20150929
  Receipt Date: 20151028
  Transmission Date: 20160304
  Serious: No
  Sender: FDA-Public Use
  Company Number: US-AMGEN-USASL2015099042

PATIENT
  Age: 41 Year
  Sex: Female

DRUGS (1)
  1. ENBREL [Suspect]
     Active Substance: ETANERCEPT
     Indication: RHEUMATOID ARTHRITIS
     Dosage: 50 MG, QWK
     Route: 065
     Dates: start: 20150831

REACTIONS (8)
  - Hypersensitivity [Unknown]
  - Dry throat [Unknown]
  - Dyspnoea [Unknown]
  - Contusion [Recovered/Resolved]
  - Pain in extremity [Unknown]
  - Oropharyngeal pain [Unknown]
  - Injection site bruising [Unknown]
  - Throat irritation [Unknown]

NARRATIVE: CASE EVENT DATE: 2015
